FAERS Safety Report 9999246 (Version 1)
Quarter: 2014Q1

REPORT INFORMATION
  Report Type: Spontaneous
  Country: US (occurrence: None)
  Receive Date: 20140311
  Receipt Date: 20140311
  Transmission Date: 20141002
  Serious: Yes (Other)
  Sender: FDA-Public Use
  Company Number: None

PATIENT
  Age: 46 Year
  Sex: Female
  Weight: 55.34 kg

DRUGS (1)
  1. FENTANYL TRANSDERMAL PATCH 75 MCG/H WATSON [Suspect]
     Indication: PAIN MANAGEMENT
     Dosage: ONE PATCH?ONE PATCH EVERY 72?APPLIED AS MEDICATED PATCH TO SKIN
     Dates: start: 20140201, end: 20140308

REACTIONS (2)
  - Myoclonus [None]
  - Product substitution issue [None]
